FAERS Safety Report 9632888 (Version 1)
Quarter: 2013Q4

REPORT INFORMATION
  Report Type: Report from Study
  Country: US (occurrence: US)
  Receive Date: 20131018
  Receipt Date: 20131018
  Transmission Date: 20140711
  Serious: Yes (Other)
  Sender: FDA-Public Use
  Company Number: US-ABBVIE-13P-163-1156645-00

PATIENT
  Sex: Female
  Weight: 90.8 kg

DRUGS (3)
  1. HUMIRA [Suspect]
     Indication: PSORIATIC ARTHROPATHY
  2. PREDNISONE [Concomitant]
     Indication: PRODUCT USED FOR UNKNOWN INDICATION
     Dosage: UNKNOWN
  3. PREDNISONE [Concomitant]

REACTIONS (6)
  - Rotator cuff syndrome [Unknown]
  - Joint injury [Unknown]
  - Device related infection [Recovered/Resolved]
  - Herpes zoster [Recovered/Resolved]
  - Arthropod bite [Recovered/Resolved]
  - Psoriatic arthropathy [Unknown]
